FAERS Safety Report 9740231 (Version 1)
Quarter: 2013Q4

REPORT INFORMATION
  Report Type: Spontaneous
  Country: US (occurrence: US)
  Receive Date: 20131209
  Receipt Date: 20131209
  Transmission Date: 20140711
  Serious: No
  Sender: FDA-Public Use
  Company Number: US-BIOGENIDEC-2013BI089299

PATIENT
  Age: 62 Year
  Sex: Female

DRUGS (10)
  1. TECFIDERA [Suspect]
     Indication: MULTIPLE SCLEROSIS
     Route: 048
     Dates: start: 201306
  2. TECFIDERA [Suspect]
     Indication: MULTIPLE SCLEROSIS
     Route: 048
  3. CENTRUM COMPLETE MULTIVIT TAB [Concomitant]
  4. CALTRATE 600 TAB [Concomitant]
  5. DIPROLENE 0.05% OINTMENT [Concomitant]
  6. OXYCODONE HCL 15 MG TAB [Concomitant]
  7. MIRALAX POWDER [Concomitant]
  8. PROVIGIL 200 MG TAB [Concomitant]
  9. OXYCONTIN 10 MG TAB [Concomitant]
  10. COLACE [Concomitant]

REACTIONS (2)
  - Hypersensitivity [Unknown]
  - Alopecia [Unknown]
